FAERS Safety Report 5874590-6 (Version None)
Quarter: 2008Q3

REPORT INFORMATION
  Report Type: 
  Country: None (occurrence: None)
  Receive Date: 20080905
  Receipt Date: 20080905
  Transmission Date: 20090109
  Serious: Yes (Hospitalization)
  Sender: FDA-Public Use
  Company Number: None

PATIENT
  Sex: Male
  Weight: 75.2 kg

DRUGS (1)
  1. CISPLATIN [Suspect]
     Dosage: 185 MG
     Dates: end: 20080819

REACTIONS (8)
  - DYSPHAGIA [None]
  - FATIGUE [None]
  - INSOMNIA [None]
  - MALAISE [None]
  - MYALGIA [None]
  - PRODUCTIVE COUGH [None]
  - PYREXIA [None]
  - TUMOUR NECROSIS [None]
